FAERS Safety Report 12988518 (Version 2)
Quarter: 2017Q1

REPORT INFORMATION
  Report Type: Report from Study
  Country: CO (occurrence: CO)
  Receive Date: 20161130
  Receipt Date: 20170130
  Transmission Date: 20170428
  Serious: No
  Sender: FDA-Public Use
  Company Number: CO-ACTELION-A-US2016-146158

PATIENT
  Age: 26 Year
  Sex: Male

DRUGS (3)
  1. VENTAVIS [Suspect]
     Active Substance: ILOPROST
     Dosage: 4 DF, QD
     Route: 055
  2. VENTAVIS [Suspect]
     Active Substance: ILOPROST
     Indication: PULMONARY HYPERTENSION
     Dosage: 1 DF, TID
     Route: 055
     Dates: start: 20101210
  3. VENTAVIS [Suspect]
     Active Substance: ILOPROST
     Dosage: 3 DF, QD
     Route: 055
     Dates: start: 20121210

REACTIONS (6)
  - Product use issue [Unknown]
  - Cardiovascular disorder [Not Recovered/Not Resolved]
  - Gait disturbance [Not Recovered/Not Resolved]
  - Peripheral swelling [Not Recovered/Not Resolved]
  - Joint swelling [Not Recovered/Not Resolved]
  - Speech disorder [Not Recovered/Not Resolved]

NARRATIVE: CASE EVENT DATE: 201509
